FAERS Safety Report 21629059 (Version 1)
Quarter: 2022Q4

REPORT INFORMATION
  Report Type: Spontaneous
  Country: US (occurrence: None)
  Receive Date: 20221122
  Receipt Date: 20221122
  Transmission Date: 20230113
  Serious: Yes (Life-Threatening, Disabling, Other)
  Sender: FDA-Public Use
  Company Number: None

PATIENT
  Age: 38 Year
  Sex: Female

DRUGS (1)
  1. TRAMADOL [Suspect]
     Active Substance: TRAMADOL
     Dates: start: 20221109, end: 20221121

REACTIONS (2)
  - Abdominal pain upper [None]
  - Suspected product quality issue [None]

NARRATIVE: CASE EVENT DATE: 20221122
